FAERS Safety Report 23240605 (Version 1)
Quarter: 2023Q4

REPORT INFORMATION
  Report Type: Spontaneous
  Country: US (occurrence: None)
  Receive Date: 20231129
  Receipt Date: 20231129
  Transmission Date: 20240109
  Serious: Yes (Hospitalization)
  Sender: FDA-Public Use
  Company Number: None

PATIENT
  Sex: Female

DRUGS (9)
  1. LISINOPRIL [Suspect]
     Active Substance: LISINOPRIL
     Indication: Product used for unknown indication
     Dosage: 10MG QD PO?
     Route: 048
     Dates: start: 202203
  2. BUDESONIDE\FORMOTEROL [Suspect]
     Active Substance: BUDESONIDE\FORMOTEROL
     Indication: Product used for unknown indication
     Dosage: 2 PUFS BID INHALATION
     Route: 055
     Dates: start: 202207
  3. KETOCONAZOLE CRE [Concomitant]
  4. VALACYCLOVIR [Concomitant]
  5. HYDROXYZINE PAMOATE [Concomitant]
     Active Substance: HYDROXYZINE PAMOATE
  6. DOVATA [Concomitant]
  7. GABAPENTIN [Concomitant]
  8. TIZANIDINE HCL [Concomitant]
  9. AMOXICILLIN [Concomitant]

REACTIONS (3)
  - Gastritis [None]
  - Intestinal obstruction [None]
  - Staphylococcal infection [None]
